FAERS Safety Report 17874417 (Version 3)
Quarter: 2025Q3

REPORT INFORMATION
  Report Type: Spontaneous
  Country: EU (occurrence: EU)
  Receive Date: 20200609
  Receipt Date: 20250703
  Transmission Date: 20251020
  Serious: Yes (Life-Threatening, Hospitalization, Other)
  Sender: AUROBINDO
  Company Number: EU-KRKA-DE2020K08508LIT

PATIENT
  Age: 27 Year
  Sex: Female

DRUGS (7)
  1. VENLAFAXINE HYDROCHLORIDE [Suspect]
     Active Substance: VENLAFAXINE HYDROCHLORIDE
     Indication: Depression
     Route: 065
  2. VENLAFAXINE HYDROCHLORIDE [Suspect]
     Active Substance: VENLAFAXINE HYDROCHLORIDE
     Route: 048
  3. CALCIUM CHLORIDE\MAGNESIUM CHLORIDE\POTASSIUM CHLORIDE\SODIUM ACETATE\ [Concomitant]
     Active Substance: CALCIUM CHLORIDE\MAGNESIUM CHLORIDE\POTASSIUM CHLORIDE\SODIUM ACETATE\SODIUM CHLORIDE
     Indication: Symptomatic treatment
     Route: 042
  4. MIDAZOLAM [Concomitant]
     Active Substance: MIDAZOLAM
     Indication: Symptomatic treatment
     Route: 042
  5. ROCURONIUM [Concomitant]
     Active Substance: ROCURONIUM BROMIDE
     Indication: Product used for unknown indication
     Route: 040
  6. SUFENTANIL [Concomitant]
     Active Substance: SUFENTANIL
     Indication: Product used for unknown indication
     Route: 040
  7. HEPARIN [Concomitant]
     Active Substance: HEPARIN SODIUM
     Indication: Product used for unknown indication

REACTIONS (29)
  - Acute kidney injury [Recovered/Resolved]
  - Pneumonia [Recovered/Resolved]
  - Acute hepatic failure [Recovered/Resolved]
  - Cardiogenic shock [Recovered/Resolved]
  - Septic shock [Recovered/Resolved]
  - Opsoclonus myoclonus [Recovered/Resolved]
  - Hallucination [Recovered/Resolved]
  - Hypoxia [Recovered/Resolved]
  - Hypotension [Unknown]
  - Lactic acidosis [Recovered/Resolved]
  - Hyperreflexia [Recovered/Resolved]
  - Left ventricular dysfunction [Recovering/Resolving]
  - Trismus [Recovered/Resolved]
  - Mydriasis [Recovered/Resolved]
  - Hypoglycaemia [Recovered/Resolved]
  - Intentional overdose [Recovered/Resolved]
  - Alcohol poisoning [Recovered/Resolved]
  - Toxicity to various agents [Recovered/Resolved]
  - Serotonin syndrome [Recovered/Resolved]
  - Anisocoria [Recovered/Resolved]
  - Shock [Recovered/Resolved]
  - Haemodynamic instability [Recovered/Resolved]
  - Multiple organ dysfunction syndrome [Recovered/Resolved]
  - Electrocardiogram QT prolonged [Unknown]
  - Disseminated intravascular coagulation [Unknown]
  - Haemorrhage [Unknown]
  - Nerve injury [Unknown]
  - Sinus tachycardia [Unknown]
  - Overdose [Recovered/Resolved]
